FAERS Safety Report 5688946-8 (Version None)
Quarter: 2008Q1

REPORT INFORMATION
  Report Type: 
  Country: None (occurrence: None)
  Receive Date: 20080331
  Receipt Date: 20060109
  Transmission Date: 20080703
  Serious: Yes (Death, Hospitalization)
  Sender: FDA-Public Use
  Company Number: CN-ROCHE-432292

PATIENT
  Sex: Male

DRUGS (3)
  1. TICLOPIDINE HCL [Suspect]
     Route: 048
  2. CLOPIDOGREL [Suspect]
     Route: 048
  3. ASPIRIN [Suspect]
     Route: 048

REACTIONS (2)
  - DEATH [None]
  - THROMBOCYTOPENIA [None]
